FAERS Safety Report 24786148 (Version 1)
Quarter: 2024Q4

REPORT INFORMATION
  Report Type: Report from Study
  Country: US (occurrence: US)
  Receive Date: 20241229
  Receipt Date: 20241229
  Transmission Date: 20250115
  Serious: Yes (Other)
  Sender: JOHNSON AND JOHNSON
  Company Number: US-JNJFOC-20241250506

PATIENT
  Age: 29 Year
  Sex: Female

DRUGS (1)
  1. SPRAVATO [Suspect]
     Active Substance: ESKETAMINE
     Indication: Depression
     Dosage: ^84 MG, 33 TOTAL DOSES^
     Route: 045
     Dates: start: 20240719, end: 20241216

REACTIONS (5)
  - Amnesia [Unknown]
  - Adverse drug reaction [Unknown]
  - Balance disorder [Unknown]
  - Fear of falling [Unknown]
  - Feeling drunk [Unknown]

NARRATIVE: CASE EVENT DATE: 20240101
